FAERS Safety Report 20442591 (Version 1)
Quarter: 2022Q1

REPORT INFORMATION
  Report Type: Spontaneous
  Country: NL (occurrence: NL)
  Receive Date: 20220208
  Receipt Date: 20220208
  Transmission Date: 20220423
  Serious: Yes (Other)
  Sender: FDA-Public Use
  Company Number: None

PATIENT
  Sex: Male
  Weight: 106 kg

DRUGS (1)
  1. AMITRIPTYLINE [Suspect]
     Active Substance: AMITRIPTYLINE
     Indication: Neuralgia
     Dosage: 1 X PER DAY 1 PIECE
     Dates: start: 20211007

REACTIONS (4)
  - Dry eye [Recovered/Resolved]
  - Dry mouth [Recovered/Resolved]
  - Depressed level of consciousness [Recovered/Resolved]
  - Peripheral coldness [Recovered/Resolved]
